FAERS Safety Report 18039316 (Version 4)
Quarter: 2020Q3

REPORT INFORMATION
  Report Type: Spontaneous
  Country: US (occurrence: US)
  Receive Date: 20200717
  Receipt Date: 20200923
  Transmission Date: 20201103
  Serious: Yes (Other)
  Sender: FDA-Public Use
  Company Number: US-BIOGEN-2008BI004569

PATIENT
  Age: 43 Year
  Sex: Male

DRUGS (3)
  1. TYSABRI [Suspect]
     Active Substance: NATALIZUMAB
     Route: 042
     Dates: end: 2011
  2. TYSABRI [Suspect]
     Active Substance: NATALIZUMAB
     Indication: MULTIPLE SCLEROSIS
     Route: 042
     Dates: start: 20070723, end: 200801
  3. TYSABRI [Suspect]
     Active Substance: NATALIZUMAB
     Route: 042
     Dates: start: 20070723, end: 20080305

REACTIONS (5)
  - Seizure [Recovered/Resolved]
  - Loss of consciousness [Recovered/Resolved]
  - Drug specific antibody present [Unknown]
  - Sinusitis [Unknown]
  - Blood brain barrier defect [Unknown]

NARRATIVE: CASE EVENT DATE: 2007
